FAERS Safety Report 23908901 (Version 2)
Quarter: 2024Q2

REPORT INFORMATION
  Report Type: Report from Study
  Country: US (occurrence: US)
  Receive Date: 20240528
  Receipt Date: 20240606
  Transmission Date: 20240716
  Serious: Yes (Hospitalization)
  Sender: FDA-Public Use
  Company Number: US-BAYER-2024A075854

PATIENT
  Age: 59 Year
  Sex: Male
  Weight: 110.66 kg

DRUGS (10)
  1. ADEMPAS [Suspect]
     Active Substance: RIOCIGUAT
     Indication: Pulmonary arterial hypertension
     Dosage: UNK
     Dates: start: 20230320
  2. ADEMPAS [Suspect]
     Active Substance: RIOCIGUAT
     Indication: Pulmonary arterial hypertension
     Dosage: 2.5 MG, TID
     Route: 048
  3. ATORVASTATIN CALCIUM [Concomitant]
     Active Substance: ATORVASTATIN CALCIUM
  4. XARELTO [Concomitant]
     Active Substance: RIVAROXABAN
  5. MOUNJARO [Concomitant]
     Active Substance: TIRZEPATIDE
  6. LASIX [Concomitant]
     Active Substance: FUROSEMIDE
  7. LEVOFLOXACIN [Concomitant]
     Active Substance: LEVOFLOXACIN
  8. CLARITIN [Concomitant]
     Active Substance: LORATADINE
  9. MINOCYCLINE HYDROCHLORIDE [Concomitant]
     Active Substance: MINOCYCLINE HYDROCHLORIDE
  10. ANTACID PLUS ANTI-GAS [Concomitant]

REACTIONS (3)
  - Left ventricular failure [Not Recovered/Not Resolved]
  - Hypotension [None]
  - Drug dose titration not performed [None]
